APPROVED DRUG PRODUCT: IDAMYCIN PFS
Active Ingredient: IDARUBICIN HYDROCHLORIDE
Strength: 5MG/5ML (1MG/ML)
Dosage Form/Route: SOLUTION;INTRAVENOUS
Application: N050734 | Product #001 | TE Code: AP
Applicant: PFIZER INC
Approved: Feb 17, 1997 | RLD: Yes | RS: Yes | Type: RX